FAERS Safety Report 14686012 (Version 1)
Quarter: 2018Q1

REPORT INFORMATION
  Report Type: Spontaneous
  Country: US (occurrence: US)
  Receive Date: 20180327
  Receipt Date: 20180327
  Transmission Date: 20180509
  Serious: No
  Sender: FDA-Public Use
  Company Number: US-DRREDDYS-USA/USA/17/0086890

PATIENT
  Age: 3 Year
  Sex: Male

DRUGS (2)
  1. DIVALPROEX SODIUM DR [Suspect]
     Active Substance: DIVALPROEX SODIUM
     Dosage: 2 CAPSULES IN THE MORNING AND 3 CAPSULES AT BEDTIME
     Route: 048
  2. DIVALPROEX SODIUM DR [Suspect]
     Active Substance: DIVALPROEX SODIUM
     Indication: SEIZURE
     Dosage: 1 CAPSULE IN THE MORNING AND 2 CAPSULES AT BEDTIME
     Route: 048
     Dates: start: 201610

REACTIONS (5)
  - Product quality issue [Unknown]
  - Medication residue present [Unknown]
  - Viral infection [Unknown]
  - Malaise [Unknown]
  - Wrong technique in product usage process [Unknown]

NARRATIVE: CASE EVENT DATE: 20170127
